FAERS Safety Report 23621988 (Version 1)
Quarter: 2024Q1

REPORT INFORMATION
  Report Type: Spontaneous
  Country: US (occurrence: None)
  Receive Date: 20240311
  Receipt Date: 20240311
  Transmission Date: 20240410
  Serious: Yes (Death)
  Sender: FDA-Public Use
  Company Number: None

PATIENT
  Age: 80 Year
  Sex: Male

DRUGS (11)
  1. TACROLIMUS [Suspect]
     Active Substance: TACROLIMUS
     Indication: Prophylaxis against transplant rejection
  2. OZEMPIC [Concomitant]
     Active Substance: SEMAGLUTIDE
  3. AMLODIPINE BESYLATE [Concomitant]
     Active Substance: AMLODIPINE BESYLATE
  4. METOPROLOL TARTRATE [Concomitant]
     Active Substance: METOPROLOL TARTRATE
  5. PREDNISONE [Concomitant]
     Active Substance: PREDNISONE
  6. ROSUVASTATIN [Concomitant]
     Active Substance: ROSUVASTATIN
  7. TACROLIMUS [Concomitant]
     Active Substance: TACROLIMUS
  8. TAMSULOSIN [Concomitant]
     Active Substance: TAMSULOSIN
  9. Aspirin 81mg EC [Concomitant]
  10. SENNA S [Concomitant]
     Active Substance: DOCUSATE SODIUM\SENNA LEAF
  11. VITAMINS [Concomitant]
     Active Substance: VITAMINS

REACTIONS (1)
  - Hospitalisation [None]

NARRATIVE: CASE EVENT DATE: 20240304
